FAERS Safety Report 7751386-1 (Version None)
Quarter: 2011Q3

REPORT INFORMATION
  Report Type: 
  Country: None (occurrence: None)
  Receive Date: 20110914
  Receipt Date: 20110517
  Transmission Date: 20111222
  Serious: No
  Sender: FDA-Public Use
  Company Number: US-BAYER-2011-043904

PATIENT
  Sex: Male

DRUGS (1)
  1. ULTRAVIST 150 [Suspect]
     Dosage: 125 ML, ONCE

REACTIONS (3)
  - NASAL CONGESTION [None]
  - LACRIMATION INCREASED [None]
  - ERYTHEMA [None]
